FAERS Safety Report 13017323 (Version 1)
Quarter: 2016Q4

REPORT INFORMATION
  Report Type: Spontaneous
  Country: GB (occurrence: GB)
  Receive Date: 20161212
  Receipt Date: 20161212
  Transmission Date: 20170207
  Serious: Yes (Life-Threatening, Hospitalization)
  Sender: FDA-Public Use
  Company Number: GB-TEVA-717472ACC

PATIENT
  Age: 76 Year
  Sex: Male
  Weight: 73.5 kg

DRUGS (13)
  1. WARFARIN [Suspect]
     Active Substance: WARFARIN
     Indication: ATRIAL FIBRILLATION
     Dosage: 1MG AND 1.5MG ON ALTERNATE DAYS
     Route: 048
  2. AMOXICILLIN. [Concomitant]
     Active Substance: AMOXICILLIN
  3. ALFACALCIDOL [Concomitant]
     Active Substance: ALFACALCIDOL
  4. AMLODIPINE [Concomitant]
     Active Substance: AMLODIPINE BESYLATE
  5. ARANESP [Concomitant]
     Active Substance: DARBEPOETIN ALFA
  6. RENAGEL [Concomitant]
     Active Substance: SEVELAMER HYDROCHLORIDE
  7. WARFARIN [Suspect]
     Active Substance: WARFARIN
     Indication: ATRIAL FIBRILLATION
     Dosage: 1MG AND 1.5MG ON ALTERNATE DAYS
     Route: 048
  8. NUROFEN [Suspect]
     Active Substance: IBUPROFEN
     Indication: BACK PAIN
     Dosage: 1600 MILLIGRAM DAILY;
     Route: 048
     Dates: start: 20161109, end: 20161116
  9. CALCICHEW [Concomitant]
     Active Substance: CALCIUM CARBONATE
  10. OMEPRAZOLE. [Concomitant]
     Active Substance: OMEPRAZOLE
  11. COLECALCIFEROL [Concomitant]
     Active Substance: CHOLECALCIFEROL
  12. ATORVASTATIN [Concomitant]
     Active Substance: ATORVASTATIN
  13. VENOFER [Concomitant]
     Active Substance: IRON SUCROSE

REACTIONS (4)
  - Coma scale abnormal [Unknown]
  - Melaena [Recovering/Resolving]
  - International normalised ratio increased [Unknown]
  - Haemoglobin decreased [Unknown]

NARRATIVE: CASE EVENT DATE: 20161111
